FAERS Safety Report 25560627 (Version 1)
Quarter: 2025Q3

REPORT INFORMATION
  Report Type: Report from Study
  Country: EU (occurrence: EU)
  Receive Date: 20250715
  Receipt Date: 20250715
  Transmission Date: 20251020
  Serious: Yes (Hospitalization)
  Sender: ABBVIE
  Company Number: EU-ABBVIE-6364121

PATIENT
  Age: 67 Year
  Sex: Female

DRUGS (3)
  1. FOSCARBIDOPA\FOSLEVODOPA [Suspect]
     Active Substance: FOSCARBIDOPA\FOSLEVODOPA
     Indication: Parkinson^s disease
     Route: 058
     Dates: start: 20250304
  2. PRAMIPEXOLE [Concomitant]
     Active Substance: PRAMIPEXOLE
     Indication: Product used for unknown indication
  3. SERTRALINE [Suspect]
     Active Substance: SERTRALINE HYDROCHLORIDE
     Indication: Product used for unknown indication
     Route: 065

REACTIONS (10)
  - Mobility decreased [Recovering/Resolving]
  - Taste disorder [Recovering/Resolving]
  - Mood altered [Not Recovered/Not Resolved]
  - Condition aggravated [Recovered/Resolved]
  - Tremor [Unknown]
  - Therapeutic product effect incomplete [Unknown]
  - Blood pressure abnormal [Recovered/Resolved]
  - Depression [Recovering/Resolving]
  - Pain [Recovering/Resolving]
  - Pulpitis dental [Recovered/Resolved]

NARRATIVE: CASE EVENT DATE: 20250101
